FAERS Safety Report 9780720 (Version 2)
Quarter: 2014Q1

REPORT INFORMATION
  Report Type: Spontaneous
  Country: GB (occurrence: GB)
  Receive Date: 20131224
  Receipt Date: 20140113
  Transmission Date: 20141002
  Serious: Yes (Other)
  Sender: FDA-Public Use
  Company Number: GB-JNJFOC-20131210772

PATIENT
  Age: 21 Year
  Sex: Female

DRUGS (5)
  1. INFLIXIMAB, RECOMBINANT [Suspect]
     Indication: TAKAYASU^S ARTERITIS
     Route: 042
  2. INFLIXIMAB, RECOMBINANT [Suspect]
     Indication: TAKAYASU^S ARTERITIS
     Dosage: ON DAYS 0, 14,??AND 45; AND THEN EVERY 2 MONTHS FOR 6 MONTHS
     Route: 042
  3. PREDNISONE [Concomitant]
     Route: 065
  4. AZATHIOPRINE [Concomitant]
     Dosage: ONCA A DAY FOR 2 MONTHS
     Route: 065
  5. METHOTREXATE [Concomitant]
     Dosage: ONCA A DAY FOR 2 MONTHS
     Route: 065

REACTIONS (2)
  - Takayasu^s arteritis [Recovering/Resolving]
  - Drug ineffective for unapproved indication [Unknown]
